FAERS Safety Report 11326900 (Version 1)
Quarter: 2015Q3

REPORT INFORMATION
  Report Type: Report from Study
  Country: AR (occurrence: AR)
  Receive Date: 20150731
  Receipt Date: 20150731
  Transmission Date: 20151125
  Serious: Yes (Other)
  Sender: FDA-Public Use
  Company Number: AR-EMD SERONO-8036306

PATIENT
  Sex: Male

DRUGS (3)
  1. SAIZEN [Suspect]
     Active Substance: SOMATROPIN
     Indication: BODY HEIGHT BELOW NORMAL
     Dates: start: 20130109, end: 20150227
  2. SAIZEN [Suspect]
     Active Substance: SOMATROPIN
     Dates: start: 20150227, end: 20150310
  3. SAIZEN [Suspect]
     Active Substance: SOMATROPIN
     Dates: start: 20150310

REACTIONS (1)
  - Diabetes mellitus [Not Recovered/Not Resolved]
